FAERS Safety Report 15017249 (Version 1)
Quarter: 2018Q2

REPORT INFORMATION
  Report Type: Spontaneous
  Country: US (occurrence: US)
  Receive Date: 20180523
  Receipt Date: 20180523
  Transmission Date: 20180711
  Serious: Yes (Hospitalization)
  Sender: FDA-Public Use
  Company Number: None

PATIENT
  Age: 73 Year
  Sex: Male

DRUGS (26)
  1. HUMALOG [Concomitant]
     Active Substance: INSULIN LISPRO
  2. LANTUS [Concomitant]
     Active Substance: INSULIN GLARGINE
  3. LEVOTHYROXIN [Concomitant]
     Active Substance: LEVOTHYROXINE
  4. MELOXICAM. [Concomitant]
     Active Substance: MELOXICAM
  5. MUCINEX [Concomitant]
     Active Substance: GUAIFENESIN
  6. SANDOSTATIN LAR DEPOT [Suspect]
     Active Substance: OCTREOTIDE ACETATE
     Indication: ACROMEGALY
     Dosage: EVERY 18 DAYS
     Route: 030
     Dates: start: 20170314, end: 201804
  7. LYRICA [Concomitant]
     Active Substance: PREGABALIN
  8. ALBUTEROL. [Concomitant]
     Active Substance: ALBUTEROL
  9. GABAPENTIN. [Concomitant]
     Active Substance: GABAPENTIN
  10. LISINOPRIL. [Concomitant]
     Active Substance: LISINOPRIL
  11. CYMBALTA [Concomitant]
     Active Substance: DULOXETINE HYDROCHLORIDE
  12. VICODIN [Concomitant]
     Active Substance: ACETAMINOPHEN\HYDROCODONE BITARTRATE
  13. BROMOCRIPTIN [Concomitant]
     Active Substance: BROMOCRIPTINE MESYLATE
  14. FUROSEMIDE. [Concomitant]
     Active Substance: FUROSEMIDE
  15. OXYBUTYNIN. [Concomitant]
     Active Substance: OXYBUTYNIN CHLORIDE
  16. LASIX [Concomitant]
     Active Substance: FUROSEMIDE
  17. NASONEX [Concomitant]
     Active Substance: MOMETASONE FUROATE
  18. NOVOLIN [Concomitant]
     Active Substance: INSULIN HUMAN
  19. PROTONIX [Concomitant]
     Active Substance: PANTOPRAZOLE SODIUM
  20. TAMSULOSIN [Concomitant]
     Active Substance: TAMSULOSIN
  21. TRAZODONE [Concomitant]
     Active Substance: TRAZODONE HYDROCHLORIDE
  22. ASPIRIN. [Concomitant]
     Active Substance: ASPIRIN
  23. SIMVASTATIN. [Concomitant]
     Active Substance: SIMVASTATIN
  24. VOLTAREN [Concomitant]
     Active Substance: DICLOFENAC SODIUM
  25. NORCO [Concomitant]
     Active Substance: ACETAMINOPHEN\HYDROCODONE BITARTRATE
  26. VANCOMYCIN [Concomitant]
     Active Substance: VANCOMYCIN

REACTIONS (1)
  - Surgery [None]

NARRATIVE: CASE EVENT DATE: 20180409
